FAERS Safety Report 8401393-0 (Version None)
Quarter: 2012Q2

REPORT INFORMATION
  Report Type: 
  Country: None (occurrence: None)
  Receive Date: 20120601
  Receipt Date: 20120522
  Transmission Date: 20120825
  Serious: Yes (Other)
  Sender: FDA-Public Use
  Company Number: DE-JNJFOC-20110312240

PATIENT
  Sex: Female
  Weight: 2.09 kg

DRUGS (3)
  1. REMICADE [Suspect]
     Dates: start: 20100902
  2. REMICADE [Suspect]
     Indication: FOETAL EXPOSURE DURING PREGNANCY
     Dates: start: 20101023
  3. REMICADE [Suspect]
     Dates: start: 20101220

REACTIONS (1)
  - LOW BIRTH WEIGHT BABY [None]
